FAERS Safety Report 4876669-4 (Version None)
Quarter: 2005Q4

REPORT INFORMATION
  Report Type: 
  Country: None (occurrence: None)
  Receive Date: 20051206
  Receipt Date: 20050803
  Transmission Date: 20060501
  Serious: No
  Sender: FDA-Public Use
  Company Number: USA020110319

PATIENT
  Age: 47 Year
  Sex: Male
  Weight: 86 kg

DRUGS (7)
  1. PROZAC [Suspect]
     Indication: DEPRESSION
     Dosage: 10 MG/DAU
     Dates: start: 19970801, end: 20010101
  2. PROZAC [Suspect]
     Indication: PANIC ATTACK
     Dosage: 10 MG/DAU
     Dates: start: 19970801, end: 20010101
  3. CYMBALTA [Suspect]
  4. XANAX (ALPRAZOALM) [Concomitant]
  5. ZERIT [Concomitant]
  6. VIRAMUNE [Concomitant]
  7. EPIVIR [Concomitant]

REACTIONS (6)
  - DEPERSONALISATION [None]
  - DRUG INEFFECTIVE [None]
  - FEELING ABNORMAL [None]
  - HEADACHE [None]
  - HYPERSENSITIVITY [None]
  - INSOMNIA [None]
